FAERS Safety Report 6565952-2 (Version None)
Quarter: 2010Q1

REPORT INFORMATION
  Report Type: 
  Country: None (occurrence: None)
  Receive Date: 20100129
  Receipt Date: 20100129
  Transmission Date: 20100710
  Serious: Yes (Hospitalization)
  Sender: FDA-Public Use
  Company Number: None

PATIENT
  Sex: Female
  Weight: 50.3493 kg

DRUGS (3)
  1. BANZEL [Suspect]
     Indication: CONVULSION
     Dates: start: 20090216, end: 20100118
  2. BANZEL [Suspect]
     Indication: CONVULSION
     Dates: start: 20090925
  3. GENERAL ANESTHESIA [Suspect]
     Indication: VAGAL NERVE STIMULATOR IMPLANTATION
     Dates: start: 20090925

REACTIONS (7)
  - ABDOMINAL PAIN UPPER [None]
  - CONSTIPATION [None]
  - NAUSEA [None]
  - NO THERAPEUTIC RESPONSE [None]
  - OROPHARYNGEAL PAIN [None]
  - VOMITING [None]
  - WEIGHT DECREASED [None]
